FAERS Safety Report 14604138 (Version 1)
Quarter: 2018Q1

REPORT INFORMATION
  Report Type: Spontaneous
  Country: US (occurrence: US)
  Receive Date: 20180305
  Receipt Date: 20180305
  Transmission Date: 20180509
  Serious: Yes (Other)
  Sender: FDA-Public Use
  Company Number: None

PATIENT
  Age: 82 Year
  Sex: Female

DRUGS (1)
  1. EYLEA [Suspect]
     Active Substance: AFLIBERCEPT
     Indication: AGE-RELATED MACULAR DEGENERATION
     Dosage: OTHER FREQUENCY:ONCE;OTHER ROUTE:INTRAVITREAL?
     Dates: start: 20180301

REACTIONS (5)
  - Photophobia [None]
  - Inflammation [None]
  - Vitreous disorder [None]
  - Vision blurred [None]
  - Visual impairment [None]

NARRATIVE: CASE EVENT DATE: 20180303
